FAERS Safety Report 4669740-3 (Version None)
Quarter: 2005Q2

REPORT INFORMATION
  Report Type: 
  Country: None (occurrence: None)
  Receive Date: 20050520
  Receipt Date: 20050510
  Transmission Date: 20051028
  Serious: Yes (Death, Hospitalization)
  Sender: FDA-Public Use
  Company Number: GXKR2005DE01066

PATIENT
  Age: 75 Year
  Sex: Male

DRUGS (1)
  1. PARACETAMOL (NGX) (PARACETAMOL) [Suspect]
     Indication: MEDICATION ERROR
     Dosage: 5000 MG

REACTIONS (3)
  - MULTI-ORGAN FAILURE [None]
  - OVERDOSE [None]
  - RENAL FAILURE [None]
